FAERS Safety Report 16971284 (Version 1)
Quarter: 2019Q4

REPORT INFORMATION
  Report Type: Spontaneous
  Country: US (occurrence: US)
  Receive Date: 20191029
  Receipt Date: 20191029
  Transmission Date: 20200122
  Serious: No
  Sender: FDA-Public Use
  Company Number: US-GALDERMA-US19052525

PATIENT
  Age: 75 Year
  Sex: Female

DRUGS (1)
  1. METRONIDAZOLE CREAM (METRONIDAZOLE) 0.75% [Suspect]
     Active Substance: METRONIDAZOLE
     Indication: ROSACEA
     Dosage: 0.75%
     Route: 061
     Dates: start: 20190712

REACTIONS (6)
  - Rash papular [Unknown]
  - Seborrhoea [Unknown]
  - Drug ineffective [Unknown]
  - Erythema [Unknown]
  - Rosacea [Unknown]
  - Product quality issue [Recovered/Resolved]

NARRATIVE: CASE EVENT DATE: 20190712
